FAERS Safety Report 18954851 (Version 2)
Quarter: 2021Q1

REPORT INFORMATION
  Report Type: Spontaneous
  Country: US (occurrence: US)
  Receive Date: 20210301
  Receipt Date: 20210315
  Transmission Date: 20210420
  Serious: Yes (Hospitalization)
  Sender: FDA-Public Use
  Company Number: US-BEXIMCO-2021BEX00009

PATIENT
  Age: 84 Year
  Sex: Female

DRUGS (4)
  1. SITAGLIPTIN [Concomitant]
     Active Substance: SITAGLIPTIN
     Route: 065
  2. METFORMIN HYDROCHLORIDE. [Suspect]
     Active Substance: METFORMIN HYDROCHLORIDE
     Indication: TYPE 2 DIABETES MELLITUS
     Route: 065
  3. BUMETANIDE. [Concomitant]
     Active Substance: BUMETANIDE
     Route: 065
  4. CALCITONIN [Concomitant]
     Active Substance: CALCITONIN
     Route: 065

REACTIONS (2)
  - Euglycaemic diabetic ketoacidosis [Recovered/Resolved]
  - Lactic acidosis [Recovered/Resolved]
